FAERS Safety Report 7693749-9 (Version None)
Quarter: 2011Q3

REPORT INFORMATION
  Report Type: 
  Country: None (occurrence: None)
  Receive Date: 20110819
  Receipt Date: 20110816
  Transmission Date: 20111222
  Serious: Yes (Hospitalization)
  Sender: FDA-Public Use
  Company Number: FR-ROCHE-797234

PATIENT
  Age: 69 Year
  Sex: Male
  Weight: 76 kg

DRUGS (1)
  1. XELODA [Suspect]
     Indication: RECTAL CANCER
     Dosage: IN THE MORNING AND IN THE EVENING
     Route: 065
     Dates: start: 20110704

REACTIONS (5)
  - ANURIA [None]
  - HYPERKALAEMIA [None]
  - RENAL FAILURE [None]
  - DERMATITIS ACNEIFORM [None]
  - METABOLIC ACIDOSIS [None]
